FAERS Safety Report 13655556 (Version 2)
Quarter: 2017Q3

REPORT INFORMATION
  Report Type: Spontaneous
  Country: US (occurrence: US)
  Receive Date: 20170615
  Receipt Date: 20170809
  Transmission Date: 20171127
  Serious: Yes (Hospitalization, Other)
  Sender: FDA-Public Use
  Company Number: US-GLAXOSMITHKLINE-US2017GSK092005

PATIENT
  Sex: Female

DRUGS (2)
  1. ADVAIR DISKUS [Suspect]
     Active Substance: FLUTICASONE PROPIONATE\SALMETEROL XINAFOATE
     Indication: CHRONIC OBSTRUCTIVE PULMONARY DISEASE
  2. ADVAIR DISKUS [Suspect]
     Active Substance: FLUTICASONE PROPIONATE\SALMETEROL XINAFOATE
     Indication: ASTHMA

REACTIONS (8)
  - Laceration [Unknown]
  - Confusional state [Unknown]
  - Knee arthroplasty [Unknown]
  - Suture insertion [Unknown]
  - Brain neoplasm [Unknown]
  - Hysterectomy [Unknown]
  - Fall [Unknown]
  - Cataract operation [Unknown]

NARRATIVE: CASE EVENT DATE: 1997
